FAERS Safety Report 14285353 (Version 3)
Quarter: 2018Q3

REPORT INFORMATION
  Report Type: Spontaneous
  Country: US (occurrence: US)
  Receive Date: 20171214
  Receipt Date: 20180919
  Transmission Date: 20181010
  Serious: Yes (Other)
  Sender: FDA-Public Use
  Company Number: US-PFIZER INC-2017534440

PATIENT
  Age: 70 Year
  Sex: Female

DRUGS (3)
  1. SINEQUAN [Suspect]
     Active Substance: DOXEPIN HYDROCHLORIDE
     Dosage: UNK
     Dates: start: 2017
  2. SINEQUAN [Suspect]
     Active Substance: DOXEPIN HYDROCHLORIDE
     Indication: DEPRESSION
     Dosage: 50 MG, UNK
  3. SINEQUAN [Suspect]
     Active Substance: DOXEPIN HYDROCHLORIDE
     Indication: CEREBROVASCULAR ACCIDENT
     Dosage: 150 MG, UNK
     Dates: start: 1984, end: 2001

REACTIONS (3)
  - Weight increased [Unknown]
  - Drug ineffective [Unknown]
  - Mental impairment [Unknown]
